FAERS Safety Report 6852231-9 (Version None)
Quarter: 2010Q3

REPORT INFORMATION
  Report Type: 
  Country: None (occurrence: None)
  Receive Date: 20100717
  Receipt Date: 20071108
  Transmission Date: 20110219
  Serious: No
  Sender: FDA-Public Use
  Company Number: US-PFIZER INC-2007096326

PATIENT
  Sex: Male
  Weight: 76.363 kg

DRUGS (3)
  1. CHANTIX [Suspect]
     Indication: SMOKING CESSATION THERAPY
     Dates: start: 20071001
  2. VYTORIN [Concomitant]
  3. CRESTOR [Concomitant]

REACTIONS (4)
  - ABNORMAL DREAMS [None]
  - ARTHRALGIA [None]
  - DRUG DOSE OMISSION [None]
  - SOMNOLENCE [None]
